FAERS Safety Report 7624369-X (Version None)
Quarter: 2011Q3

REPORT INFORMATION
  Report Type: 
  Country: None (occurrence: None)
  Receive Date: 20110720
  Receipt Date: 20110711
  Transmission Date: 20111222
  Serious: Yes (Death)
  Sender: FDA-Public Use
  Company Number: NL-GENZYME-CLOF-1001690

PATIENT
  Sex: Male
  Weight: 72 kg

DRUGS (9)
  1. VANCOMYCIN [Concomitant]
     Indication: INFECTION
     Dosage: 1000 MG, UNK
     Route: 042
     Dates: start: 20110612, end: 20110620
  2. EVOLTRA [Suspect]
     Indication: ACUTE MYELOID LEUKAEMIA
     Dosage: 18 MG, UNK
     Route: 042
     Dates: start: 20110601, end: 20110605
  3. VALACICLOVIR [Concomitant]
     Indication: INFECTION PROPHYLAXIS
     Dosage: 500 MG, UNK
     Route: 048
     Dates: start: 20110601, end: 20110618
  4. VORICONAZOLE [Concomitant]
     Indication: PRODUCT USED FOR UNKNOWN INDICATION
     Dosage: UNK
     Route: 065
     Dates: end: 20110624
  5. LORAZEPAM [Concomitant]
     Indication: SLEEP DISORDER THERAPY
     Dosage: 1 MG, UNK
     Route: 048
     Dates: start: 20110601, end: 20110620
  6. ITRACONAZOLE [Concomitant]
     Indication: INFECTION
     Dosage: 100 MG, UNK
     Route: 048
     Dates: start: 20110601, end: 20110620
  7. AMSACRINE [Suspect]
     Indication: ACUTE MYELOID LEUKAEMIA
     Dosage: 224 MG, UNK
     Route: 042
     Dates: start: 20110604, end: 20110606
  8. CYTARABINE [Suspect]
     Indication: ACUTE MYELOID LEUKAEMIA
     Dosage: 3740 MG, UNK
     Route: 042
     Dates: start: 20110601, end: 20110606
  9. COTRIM [Concomitant]
     Indication: PROPHYLAXIS
     Dosage: 400 MG, UNK
     Route: 048
     Dates: start: 20110601, end: 20110618

REACTIONS (1)
  - HEPATIC FAILURE [None]
